FAERS Safety Report 18539887 (Version 2)
Quarter: 2022Q3

REPORT INFORMATION
  Report Type: Spontaneous
  Country: DE (occurrence: DE)
  Receive Date: 20201124
  Receipt Date: 20220713
  Transmission Date: 20221027
  Serious: Yes (Other)
  Sender: FDA-Public Use
  Company Number: DE-GSKCCFEMEA-CASE-01071779_AE-36166

PATIENT

DRUGS (2)
  1. FLUTICASONE PROPIONATE [Suspect]
     Active Substance: FLUTICASONE PROPIONATE
     Indication: Asthma
     Dosage: 50 MCG, UNK, BID (1X IN MORNING AND 1X IN EVENING)
     Dates: start: 20201026, end: 20201029
  2. ALBUTEROL [Concomitant]
     Active Substance: ALBUTEROL
     Indication: Product used for unknown indication
     Dosage: UNK

REACTIONS (8)
  - Suicidal ideation [Recovered/Resolved]
  - Irritability [Recovered/Resolved]
  - Depressed mood [Recovered/Resolved]
  - Decreased interest [Recovered/Resolved]
  - Anger [Recovered/Resolved]
  - Apathy [Unknown]
  - Nervousness [Unknown]
  - Depression [Recovered/Resolved]

NARRATIVE: CASE EVENT DATE: 20201028
